FAERS Safety Report 4668590-1 (Version None)
Quarter: 2005Q2

REPORT INFORMATION
  Report Type: 
  Country: None (occurrence: None)
  Receive Date: 20050519
  Receipt Date: 20050506
  Transmission Date: 20051028
  Serious: Yes (Hospitalization, Other)
  Sender: FDA-Public Use
  Company Number: 2005071187

PATIENT
  Age: 84 Year
  Sex: Male

DRUGS (5)
  1. NEURONTIN [Suspect]
     Indication: EPILEPSY
     Dosage: 100 MG (100 MG, 1 IN 1 D), ORAL
     Route: 048
     Dates: start: 20030601
  2. ZOCOR [Concomitant]
  3. DILANTIN [Concomitant]
  4. APIRIN (ACETYLSALICYLIC ACID) [Concomitant]
  5. POTASSIUM CHLORIDE [Concomitant]

REACTIONS (5)
  - GRAND MAL CONVULSION [None]
  - PHARMACEUTICAL PRODUCT COMPLAINT [None]
  - STATUS EPILEPTICUS [None]
  - TREMOR [None]
  - UNDERDOSE [None]
